FAERS Safety Report 4452410-4 (Version None)
Quarter: 2004Q3

REPORT INFORMATION
  Report Type: 
  Country: None (occurrence: None)
  Receive Date: 20040917
  Receipt Date: 20040906
  Transmission Date: 20050211
  Serious: Yes (Disabling, Other)
  Sender: FDA-Public Use
  Company Number: PHFR2004GB03410

PATIENT
  Age: 91 Year
  Sex: Female

DRUGS (13)
  1. FAMCICLOVIR [Suspect]
     Indication: HERPES ZOSTER
     Dosage: 750 MG/DAY
     Route: 048
     Dates: start: 20030502, end: 20030510
  2. ASPIRIN [Concomitant]
     Dosage: 75 MG/DAY
     Route: 048
  3. CLOPIDOGREL [Concomitant]
     Dosage: 75 MG/DAY
     Route: 048
  4. OMEPRAZOLE [Concomitant]
     Dosage: 20 MG/DAY
     Route: 048
  5. FYBOGEL [Concomitant]
     Dosage: UNK, BID
     Route: 048
  6. FLUCLOXACILLIN [Concomitant]
     Dosage: 500 MG, QID
     Route: 048
     Dates: end: 20030506
  7. CO-CODAMOL [Concomitant]
     Indication: BACK PAIN
  8. DICLOFENAC [Concomitant]
     Indication: BACK PAIN
     Dosage: 500 MG, TID
     Route: 048
     Dates: end: 20030507
  9. IRON SULFATETHIAMIN COMPOUND TAB [Concomitant]
     Dosage: 200 MG, TID
     Route: 048
     Dates: start: 20030509
  10. PARACETAMOL [Concomitant]
     Dosage: 1 G, QID
     Route: 048
  11. CYCLIZINE [Concomitant]
     Indication: NAUSEA
     Dosage: 50 MG, TID
     Route: 065
     Dates: start: 20030509
  12. ONDANSETRON [Concomitant]
     Dosage: 4 MG/DAY
     Route: 048
     Dates: start: 20030510
  13. PHOSPHATE ENEMA [Concomitant]

REACTIONS (7)
  - BLOOD AMYLASE INCREASED [None]
  - BLOOD UREA INCREASED [None]
  - CONFUSIONAL STATE [None]
  - HALLUCINATION [None]
  - MALAISE [None]
  - NAUSEA [None]
  - PANCREATITIS [None]
